FAERS Safety Report 17555144 (Version 1)
Quarter: 2020Q1

REPORT INFORMATION
  Report Type: Spontaneous
  Country: US (occurrence: US)
  Receive Date: 20200317
  Receipt Date: 20200317
  Transmission Date: 20200409
  Serious: Yes (Life-Threatening)
  Sender: FDA-Public Use
  Company Number: None

PATIENT
  Age: 83 Year
  Sex: Male
  Weight: 99.34 kg

DRUGS (1)
  1. ABIRATERONE. [Suspect]
     Active Substance: ABIRATERONE ACETATE
     Route: 048

REACTIONS (1)
  - Disease progression [None]
